FAERS Safety Report 6282190-1 (Version None)
Quarter: 2009Q3

REPORT INFORMATION
  Report Type: 
  Country: None (occurrence: None)
  Receive Date: 20090724
  Receipt Date: 20090715
  Transmission Date: 20100115
  Serious: Yes (Other)
  Sender: FDA-Public Use
  Company Number: US-JNJCH-2009019363

PATIENT
  Age: 69 Year
  Sex: Male
  Weight: 80.7 kg

DRUGS (2)
  1. SUDAFED PE SINUS HEADACHE CAPLET [Suspect]
     Indication: DRUG USE FOR UNKNOWN INDICATION
     Dosage: TEXT:2 CAPLETS EVERY 4 HOURS
     Route: 048
     Dates: start: 20090714, end: 20090715
  2. ASPIRIN [Suspect]
     Indication: HEADACHE
     Dosage: TEXT:UNSPECIFIED
     Route: 048

REACTIONS (1)
  - HAEMATOCHEZIA [None]
